FAERS Safety Report 8401283-3 (Version None)
Quarter: 2012Q2

REPORT INFORMATION
  Report Type: 
  Country: None (occurrence: None)
  Receive Date: 20120530
  Receipt Date: 20120530
  Transmission Date: 20120825
  Serious: Yes (Other)
  Sender: FDA-Public Use
  Company Number: None

PATIENT
  Age: 67 Year
  Sex: Male
  Weight: 84.8226 kg

DRUGS (3)
  1. BLOOD PRESSURE MEDICATION NOS (ANTIHYPERTENSIVES) [Concomitant]
  2. CHOLESTEROL MEDICATION NOS (CHOLESTEROL- AND TRIGLYCERIDE REDUCERS) [Concomitant]
  3. LISTERINE POCKETPAK COOLMINT (ORAL CARE PRODUCTS) FILMSTRIP [Suspect]
     Indication: DENTAL DISORDER PROPHYLAXIS
     Dosage: IN 1 AS NECESSARY, ORAL
     Route: 048

REACTIONS (1)
  - NEPHROLITHIASIS [None]
